FAERS Safety Report 4286556-0 (Version None)
Quarter: 2004Q1

REPORT INFORMATION
  Report Type: 
  Country: None (occurrence: None)
  Receive Date: 20040204
  Receipt Date: 20040119
  Transmission Date: 20041129
  Serious: Yes (Death, Hospitalization)
  Sender: FDA-Public Use
  Company Number: 2004PL000001

PATIENT
  Age: 59 Year
  Sex: Male

DRUGS (5)
  1. AZATHIOPRINE [Suspect]
     Indication: MYASTHENIA GRAVIS
     Dosage: ORAL
     Route: 048
  2. PREDNISOLONE [Concomitant]
  3. VITAMIN B-12 [Concomitant]
  4. PYRIDOSTIGMINE BROMIDE [Concomitant]
  5. PREDNISOLONE [Concomitant]

REACTIONS (13)
  - BACTERIAL SEPSIS [None]
  - BLADDER CANCER [None]
  - DIFFUSE LARGE B-CELL LYMPHOMA [None]
  - HAEMATURIA [None]
  - HYDRONEPHROSIS [None]
  - MALIGNANT NEOPLASM PROGRESSION [None]
  - METASTASES TO PROSTATE [None]
  - NON-HODGKIN'S LYMPHOMA [None]
  - RENAL FAILURE [None]
  - STAPHYLOCOCCAL INFECTION [None]
  - TESTIS CANCER [None]
  - URETERIC OBSTRUCTION [None]
  - URINARY TRACT INFECTION [None]
